FAERS Safety Report 10189210 (Version 1)
Quarter: 2014Q2

REPORT INFORMATION
  Report Type: Spontaneous
  Country: US (occurrence: None)
  Receive Date: 20140521
  Receipt Date: 20140521
  Transmission Date: 20141212
  Serious: Yes (Other)
  Sender: FDA-Public Use
  Company Number: None

PATIENT
  Age: 4 Year
  Sex: Male
  Weight: 23.5 kg

DRUGS (2)
  1. DEXAMETHASONE [Suspect]
     Indication: MIDDLE EAR EFFUSION
     Dosage: 3 TAB X 3 DAY 1 TAB X 2 DAY 1 ONCE DAILY TAKEN BY MOUTH
     Route: 048
     Dates: start: 20140423, end: 20140429
  2. DEXAMETHASONE [Suspect]
     Indication: EAR SWELLING
     Dosage: 3 TAB X 3 DAY 1 TAB X 2 DAY 1 ONCE DAILY TAKEN BY MOUTH
     Route: 048
     Dates: start: 20140423, end: 20140429

REACTIONS (5)
  - Thirst [None]
  - Polyuria [None]
  - Blood glucose increased [None]
  - Glucose urine present [None]
  - Glycosylated haemoglobin increased [None]
